FAERS Safety Report 8167534-8 (Version None)
Quarter: 2012Q1

REPORT INFORMATION
  Report Type: 
  Country: None (occurrence: None)
  Receive Date: 20120221
  Receipt Date: 20120212
  Transmission Date: 20120608
  Serious: Yes (Other)
  Sender: FDA-Public Use
  Company Number: USW201202-000010

PATIENT

DRUGS (1)
  1. BOTULINUM TOXIN TYPE B (BOTULINUM TOXIN TYPE B) (INJECTION) (BOTULINUM [Suspect]
     Indication: SALIVARY HYPERSECRETION
     Dosage: INTRAGLANDULAR

REACTIONS (2)
  - SIALOADENITIS [None]
  - SALIVARY GLAND CALCULUS [None]
